FAERS Safety Report 8810662 (Version 1)
Quarter: 2012Q4

REPORT INFORMATION
  Report Type: Spontaneous
  Country: US (occurrence: None)
  Receive Date: 20120924
  Receipt Date: 20120924
  Transmission Date: 20130627
  Serious: No
  Sender: FDA-Public Use
  Company Number: None

PATIENT
  Age: 81 Year
  Sex: Male
  Weight: 79.38 kg

DRUGS (1)
  1. AZATHIOPRINE [Suspect]
     Indication: MYASTHENIA GRAVIS
     Dates: start: 20120905, end: 20120924

REACTIONS (9)
  - Pyrexia [None]
  - Chills [None]
  - Tremor [None]
  - Dyspnoea [None]
  - Diarrhoea [None]
  - Ocular icterus [None]
  - Eye haemorrhage [None]
  - Aphagia [None]
  - Gait disturbance [None]
